FAERS Safety Report 10693768 (Version 1)
Quarter: 2015Q1

REPORT INFORMATION
  Report Type: Spontaneous
  Country: GB (occurrence: GB)
  Receive Date: 20150106
  Receipt Date: 20150106
  Transmission Date: 20150721
  Serious: Yes (Hospitalization)
  Sender: FDA-Public Use
  Company Number: GB-BAYER-2015-000289

PATIENT
  Age: 62 Year
  Sex: Female

DRUGS (7)
  1. ACETYLSALICYLIC ACID (} 100 MG) [Suspect]
     Active Substance: ASPIRIN
     Indication: VIITH NERVE PARALYSIS
     Dosage: 300 MG, QD
     Route: 048
     Dates: start: 201411, end: 20141217
  2. PREDNISOLONE. [Suspect]
     Active Substance: PREDNISOLONE
     Indication: CEREBROVASCULAR ACCIDENT
  3. PREDNISOLONE. [Suspect]
     Active Substance: PREDNISOLONE
     Indication: VIITH NERVE PARALYSIS
     Dosage: 50 MG, QD
     Route: 048
     Dates: start: 201411, end: 201411
  4. ROSUVASTATIN [Concomitant]
     Active Substance: ROSUVASTATIN
  5. ACETYLSALICYLIC ACID (} 100 MG) [Suspect]
     Active Substance: ASPIRIN
     Indication: CEREBROVASCULAR ACCIDENT
  6. INDAPAMIDE. [Concomitant]
     Active Substance: INDAPAMIDE
  7. RAMIPRIL [RAMIPRIL] [Concomitant]

REACTIONS (6)
  - Gastritis [Recovering/Resolving]
  - Syncope [Recovering/Resolving]
  - Upper gastrointestinal haemorrhage [Recovering/Resolving]
  - Haematemesis [Recovering/Resolving]
  - Gastric ulcer [Recovering/Resolving]
  - Melaena [Recovering/Resolving]

NARRATIVE: CASE EVENT DATE: 20141217
